FAERS Safety Report 7164383-4 (Version None)
Quarter: 2010Q4

REPORT INFORMATION
  Report Type: 
  Country: None (occurrence: None)
  Receive Date: 20101215
  Receipt Date: 20101202
  Transmission Date: 20110411
  Serious: Yes (Other)
  Sender: FDA-Public Use
  Company Number: US-RB-016708-10

PATIENT
  Age: 43 Year
  Sex: Female

DRUGS (2)
  1. MUCINEX [Suspect]
     Dosage: PATIENT TOOK ONE DOSE
     Route: 048
  2. METROPOLOL [Concomitant]
     Dosage: 25MG TAKEN DAILY.

REACTIONS (4)
  - BRONCHOSPASM [None]
  - COUGH [None]
  - DYSPNOEA [None]
  - RESPIRATORY TRACT CONGESTION [None]
